FAERS Safety Report 23398383 (Version 1)
Quarter: 2024Q1

REPORT INFORMATION
  Report Type: Spontaneous
  Country: IN (occurrence: IN)
  Receive Date: 20240112
  Receipt Date: 20240112
  Transmission Date: 20240410
  Serious: Yes (Other)
  Sender: FDA-Public Use
  Company Number: IN-PFIZER INC-PV202300204552

PATIENT
  Age: 84 Year
  Sex: Male

DRUGS (2)
  1. LORLATINIB [Suspect]
     Active Substance: LORLATINIB
     Dosage: 100MG
     Route: 048
     Dates: start: 202310
  2. LORLATINIB [Suspect]
     Active Substance: LORLATINIB
     Dosage: 100MG OD
     Route: 048
     Dates: start: 20231102, end: 202312

REACTIONS (6)
  - Hallucination [Unknown]
  - Blood cholesterol increased [Unknown]
  - Haemoglobin decreased [Unknown]
  - Blood triglycerides increased [Unknown]
  - Neoplasm progression [Unknown]
  - Fatigue [Unknown]
